FAERS Safety Report 7927060-5 (Version None)
Quarter: 2011Q4

REPORT INFORMATION
  Report Type: 
  Country: None (occurrence: None)
  Receive Date: 20111118
  Receipt Date: 20111110
  Transmission Date: 20120403
  Serious: Yes (Disabling, Congenital Anomaly)
  Sender: FDA-Public Use
  Company Number: US-ASTELLAS-2011US006164

PATIENT
  Sex: Female
  Weight: 62 kg

DRUGS (9)
  1. PREVACID [Concomitant]
     Indication: GASTROOESOPHAGEAL REFLUX DISEASE
     Dosage: 250 MG, BID
     Route: 048
     Dates: start: 20090101
  2. XOPENEX [Concomitant]
     Indication: ASTHMA
     Dosage: UNK
     Route: 055
     Dates: start: 20090101
  3. SINGULAIR [Concomitant]
     Indication: ASTHMA
     Dosage: 10 MG, UID/QD
     Route: 048
     Dates: start: 20060101
  4. ZOLAIR [Concomitant]
     Indication: ASTHMA
     Dosage: EVERY OTHER WEEK
     Route: 065
  5. DULERA (FORMOTEROL, MOMETASONE) [Concomitant]
     Indication: ASTHMA
     Dosage: 1 DF, BID
     Route: 065
     Dates: start: 20110301
  6. TACROLIMUS [Suspect]
     Indication: DERMATITIS ATOPIC
     Dosage: 0.1 %, BID
     Route: 061
     Dates: start: 20020604
  7. CLOBETASOL [Concomitant]
     Indication: DERMATITIS ATOPIC
     Dosage: 0.05 %, BID PRN
     Route: 061
     Dates: start: 20020101
  8. TRIAMCINOLONE [Concomitant]
     Indication: DERMATITIS ATOPIC
     Dosage: 0.1 %, BID PRN
     Route: 061
     Dates: start: 20030522
  9. FLOVENT [Concomitant]
     Indication: ASTHMA
     Dosage: UNK
     Route: 055
     Dates: start: 20100901

REACTIONS (2)
  - OFF LABEL USE [None]
  - PRIMARY CILIARY DYSKINESIA [None]
